FAERS Safety Report 13079329 (Version 2)
Quarter: 2017Q1

REPORT INFORMATION
  Report Type: Spontaneous
  Country: US (occurrence: US)
  Receive Date: 20170103
  Receipt Date: 20170109
  Transmission Date: 20170428
  Serious: Yes (Other)
  Sender: FDA-Public Use
  Company Number: US-AMGEN-USASP2016183884

PATIENT
  Age: 84 Year
  Sex: Female

DRUGS (4)
  1. DOXEPIN [Concomitant]
     Active Substance: DOXEPIN
     Indication: SLEEP DISORDER
     Dosage: UNK
  2. TRAMADOL. [Concomitant]
     Active Substance: TRAMADOL
     Dosage: 50 MG, BID
  3. CORTISONE [Concomitant]
     Active Substance: CORTISONE\HYDROCORTISONE
     Dosage: UNK
     Dates: start: 201610
  4. ENBREL [Suspect]
     Active Substance: ETANERCEPT
     Indication: RHEUMATOID ARTHRITIS
     Dosage: 50 MG, QWK
     Route: 065
     Dates: start: 2001, end: 201612

REACTIONS (7)
  - Rheumatoid arthritis [Unknown]
  - Osteomyelitis [Unknown]
  - Osteoporosis [Unknown]
  - Incorrect product storage [Unknown]
  - Wrong technique in product usage process [Unknown]
  - Hepatitis C [Recovered/Resolved]
  - Latent tuberculosis [Unknown]

NARRATIVE: CASE EVENT DATE: 2001
